FAERS Safety Report 5423638-1 (Version None)
Quarter: 2007Q3

REPORT INFORMATION
  Report Type: 
  Country: None (occurrence: None)
  Receive Date: 20070727
  Receipt Date: 20060124
  Transmission Date: 20080115
  Serious: Yes (Hospitalization)
  Sender: FDA-Public Use
  Company Number: THYM-10861

PATIENT
  Age: 48 Year
  Sex: Male
  Weight: 102.2861 kg

DRUGS (16)
  1. THYMOGLOBULIN [Suspect]
     Indication: RENAL TRANSPLANT
     Dosage: 125 MG IV
     Route: 042
     Dates: start: 20060105, end: 20060108
  2. PROGRAF [Concomitant]
  3. MYFORTIC [Concomitant]
  4. SEPTRA [Concomitant]
  5. MYCELEX [Concomitant]
  6. ASPIRIN [Concomitant]
  7. VALCYTE [Concomitant]
  8. XANAX [Concomitant]
  9. ALLOPURINOL [Concomitant]
  10. COREG [Concomitant]
  11. PEPCID [Concomitant]
  12. PRAVACHOL [Concomitant]
  13. FLOMAX [Concomitant]
  14. TOPROL-XL [Concomitant]
  15. NORVASC [Concomitant]
  16. OXYBUTYNIN CHLORIDE [Concomitant]

REACTIONS (2)
  - KIDNEY TRANSPLANT REJECTION [None]
  - SEROMA [None]
